FAERS Safety Report 9220974 (Version 2)
Quarter: 2013Q2

REPORT INFORMATION
  Report Type: Spontaneous
  Country: FR (occurrence: US)
  Receive Date: 20130409
  Receipt Date: 20130503
  Transmission Date: 20140414
  Serious: Yes (Death, Other)
  Sender: FDA-Public Use
  Company Number: US-PFIZER INC-2013108570

PATIENT
  Age: 66 Year
  Sex: Male

DRUGS (3)
  1. CHLORAMPHENICOL [Suspect]
     Indication: BRONCHITIS
     Dosage: 1 G, 3X/DAY FOR 5 DAYS
  2. CHLORAMPHENICOL [Suspect]
     Dosage: 750 MG, 4X/DAY
  3. CHLORAMPHENICOL [Suspect]
     Indication: ECZEMA

REACTIONS (3)
  - Bone marrow failure [Fatal]
  - Granulocytopenia [Unknown]
  - Thrombocytopenia [Unknown]
